FAERS Safety Report 23656465 (Version 1)
Quarter: 2024Q1

REPORT INFORMATION
  Report Type: Report from Study
  Country: CA (occurrence: CA)
  Receive Date: 20240321
  Receipt Date: 20240321
  Transmission Date: 20240410
  Serious: Yes (Other)
  Sender: FDA-Public Use
  Company Number: CA-TEVA-2017-CA-832714

PATIENT
  Age: 61 Year
  Sex: Female

DRUGS (5)
  1. COPAXONE [Suspect]
     Active Substance: GLATIRAMER ACETATE
     Indication: Relapsing-remitting multiple sclerosis
     Dosage: DOSAGE TEXT: COPAXONE 20MG/ML
     Route: 058
     Dates: start: 19990322, end: 20230731
  2. CRESTOR [Concomitant]
     Active Substance: ROSUVASTATIN CALCIUM
     Route: 065
  3. HERBALS [Concomitant]
     Active Substance: HERBALS
     Route: 065
  4. GLUCOSAMINE [Concomitant]
     Active Substance: GLUCOSAMINE
     Route: 065
  5. GABAPENTIN [Concomitant]
     Active Substance: GABAPENTIN
     Route: 065

REACTIONS (11)
  - Multiple sclerosis [Unknown]
  - Limb injury [Unknown]
  - Pain in extremity [Unknown]
  - Pain in extremity [Unknown]
  - Headache [Unknown]
  - Eye movement disorder [Unknown]
  - Fatigue [Unknown]
  - Limb discomfort [Unknown]
  - Bone pain [Unknown]
  - Back pain [Unknown]
  - Spinal disorder [Unknown]

NARRATIVE: CASE EVENT DATE: 20180101
